FAERS Safety Report 7529533-6 (Version None)
Quarter: 2011Q2

REPORT INFORMATION
  Report Type: 
  Country: None (occurrence: None)
  Receive Date: 20110607
  Receipt Date: 20050829
  Transmission Date: 20111010
  Serious: Yes (Death, Other)
  Sender: FDA-Public Use
  Company Number: PHHO2005CA11461

PATIENT
  Sex: Male

DRUGS (2)
  1. LORAZEPAM [Concomitant]
  2. CLOZARIL [Suspect]
     Indication: SCHIZOPHRENIA, PARANOID TYPE
     Dates: start: 19950913

REACTIONS (1)
  - NEOPLASM MALIGNANT [None]
